FAERS Safety Report 4920856-3 (Version None)
Quarter: 2006Q1

REPORT INFORMATION
  Report Type: 
  Country: None (occurrence: None)
  Receive Date: 20060217
  Receipt Date: 20060206
  Transmission Date: 20060701
  Serious: Yes (Hospitalization)
  Sender: FDA-Public Use
  Company Number: 144-20785-06020015

PATIENT
  Age: 74 Year
  Sex: Male

DRUGS (4)
  1. THALIDOMIDE - PHARMION (THALIDOMIDE) (50 MILLIGRAM, CAPSULES) [Suspect]
     Indication: MULTIPLE MYELOMA
     Dosage: 100 MG, DAILY, ORAL
     Route: 048
     Dates: start: 20050531, end: 20060130
  2. CYCLOPHOSPHAMIDE [Suspect]
     Indication: MULTIPLE MYELOMA
     Dosage: 15 MG, EVERY THURSDAY, ORAL
     Route: 048
  3. PREDNISONE TAB [Suspect]
     Indication: MULTIPLE MYELOMA
     Dosage: 20-30 MG, 2 DAYS EVERY 20 DAYS
  4. VELCADE [Concomitant]

REACTIONS (5)
  - BLOOD AMYLASE INCREASED [None]
  - HEPATIC NEOPLASM [None]
  - JAUNDICE [None]
  - LABORATORY TEST ABNORMAL [None]
  - PLASMACYTOMA [None]
